FAERS Safety Report 5494537-4 (Version None)
Quarter: 2007Q4

REPORT INFORMATION
  Report Type: 
  Country: None (occurrence: None)
  Receive Date: 20071024
  Receipt Date: 20071010
  Transmission Date: 20080405
  Serious: Yes (Hospitalization, Other)
  Sender: FDA-Public Use
  Company Number: US-ELI_LILLY_AND_COMPANY-US200710000121

PATIENT
  Age: 98 Year
  Sex: Female

DRUGS (11)
  1. FORTEO [Suspect]
     Indication: OSTEOPOROTIC FRACTURE
     Dosage: 20 UG, DAILY (1/D)
     Dates: start: 20031211
  2. SYNTHROID [Concomitant]
  3. AMIODARONE [Concomitant]
  4. LASIX [Concomitant]
  5. IRON [Concomitant]
  6. ZOLOFT [Concomitant]
  7. QUININE SULFATE [Concomitant]
  8. PROTONIX [Concomitant]
  9. SENOKOT [Concomitant]
  10. DOCUSATE [Concomitant]
  11. TYLENOL W/ CODEINE [Concomitant]

REACTIONS (5)
  - BALANCE DISORDER [None]
  - FALL [None]
  - HIP FRACTURE [None]
  - PULMONARY EMBOLISM [None]
  - TREMOR [None]
